FAERS Safety Report 6040644-7 (Version None)
Quarter: 2009Q1

REPORT INFORMATION
  Report Type: 
  Country: None (occurrence: None)
  Receive Date: 20090116
  Receipt Date: 20080515
  Transmission Date: 20090719
  Serious: Yes (Death)
  Sender: FDA-Public Use
  Company Number: US-BRISTOL-MYERS SQUIBB COMPANY-14166011

PATIENT
  Age: 47 Year
  Sex: Female

DRUGS (2)
  1. ABILIFY [Suspect]
     Indication: MAJOR DEPRESSION
     Dosage: 1 DOSAGE FORM = 2MG-4MG APPROXIMATELY
     Route: 048
     Dates: start: 20080306
  2. ZOLOFT [Suspect]
     Indication: MAJOR DEPRESSION
     Dosage: HAD BEEN ON 200MG SINCE 2001
     Dates: start: 20080303

REACTIONS (1)
  - COMPLETED SUICIDE [None]
